FAERS Safety Report 6337322-3 (Version None)
Quarter: 2009Q3

REPORT INFORMATION
  Report Type: 
  Country: None (occurrence: None)
  Receive Date: 20090828
  Receipt Date: 20090828
  Transmission Date: 20100115
  Serious: Yes (Other)
  Sender: FDA-Public Use
  Company Number: None

PATIENT
  Sex: Male
  Weight: 79.3795 kg

DRUGS (1)
  1. PLAVIX [Suspect]
     Indication: STENT PLACEMENT
     Dosage: 75MG 1 PER DDAY IN AM PO
     Route: 048
     Dates: start: 20090721, end: 20090827

REACTIONS (6)
  - ALTERED VISUAL DEPTH PERCEPTION [None]
  - DIPLOPIA [None]
  - HEADACHE [None]
  - TEMPORAL ARTERITIS [None]
  - VISION BLURRED [None]
  - VISUAL IMPAIRMENT [None]
